FAERS Safety Report 7378242-5 (Version None)
Quarter: 2011Q1

REPORT INFORMATION
  Report Type: 
  Country: None (occurrence: None)
  Receive Date: 20110328
  Receipt Date: 20110318
  Transmission Date: 20110831
  Serious: Yes (Hospitalization)
  Sender: FDA-Public Use
  Company Number: B0703351A

PATIENT
  Sex: Female
  Weight: 44 kg

DRUGS (6)
  1. PYDOXAL [Concomitant]
     Indication: PROPHYLAXIS
     Route: 048
     Dates: start: 20100223, end: 20100819
  2. XELODA [Suspect]
     Dosage: 1800MG PER DAY
     Route: 048
     Dates: start: 20100804, end: 20100819
  3. TYKERB [Suspect]
     Indication: BREAST CANCER
     Dosage: 1250MG PER DAY
     Route: 048
     Dates: start: 20100223, end: 20100706
  4. MYSLEE [Concomitant]
     Indication: INSOMNIA
     Route: 048
  5. XELODA [Suspect]
     Dosage: 3000MG PER DAY
     Route: 048
     Dates: start: 20100223, end: 20100602
  6. XELODA [Suspect]
     Dosage: 2400MG PER DAY
     Route: 048
     Dates: start: 20100610, end: 20100706

REACTIONS (2)
  - ERYTHEMA [None]
  - CELLULITIS [None]
